FAERS Safety Report 5717162-6 (Version None)
Quarter: 2008Q2

REPORT INFORMATION
  Report Type: 
  Country: None (occurrence: None)
  Receive Date: 20080424
  Receipt Date: 20080414
  Transmission Date: 20081010
  Serious: Yes (Other)
  Sender: FDA-Public Use
  Company Number: US-PFIZER INC-2008032863

PATIENT
  Sex: Female
  Weight: 54.4 kg

DRUGS (3)
  1. LIPITOR [Suspect]
     Indication: BLOOD CHOLESTEROL INCREASED
     Route: 048
     Dates: start: 20050101, end: 20050101
  2. NEURONTIN [Suspect]
     Indication: NEUROPATHY PERIPHERAL
  3. ALOES [Concomitant]

REACTIONS (4)
  - FEELING ABNORMAL [None]
  - MUSCLE INJURY [None]
  - NERVE INJURY [None]
  - NEUROPATHY PERIPHERAL [None]
